FAERS Safety Report 8303903-0 (Version None)
Quarter: 2012Q2

REPORT INFORMATION
  Report Type: 
  Country: None (occurrence: None)
  Receive Date: 20120423
  Receipt Date: 20120419
  Transmission Date: 20120825
  Serious: Yes (Other)
  Sender: FDA-Public Use
  Company Number: US-RB-038348-12

PATIENT
  Age: 6 Year
  Sex: Male

DRUGS (1)
  1. MUCINEX COUGH MINI MELTS ORANGE [Suspect]
     Indication: PRODUCT USED FOR UNKNOWN INDICATION
     Dosage: 04.18.12 1 PACKET EVERY 4 HOURS OR MORE
     Route: 048
     Dates: start: 20120418

REACTIONS (1)
  - HALLUCINATION [None]
